FAERS Safety Report 5440652-0 (Version None)
Quarter: 2007Q3

REPORT INFORMATION
  Report Type: 
  Country: None (occurrence: None)
  Receive Date: 20070831
  Receipt Date: 20070810
  Transmission Date: 20080115
  Serious: No
  Sender: FDA-Public Use
  Company Number: US-BOEHRINGER INGELHEIM PHARMACEUTICALS, INC.-2007-BP-18995BP

PATIENT
  Sex: Female

DRUGS (5)
  1. MIRAPEX [Suspect]
     Indication: RESTLESS LEGS SYNDROME
     Route: 048
     Dates: start: 20060101
  2. PROTONIX [Concomitant]
  3. ETODOLAC [Concomitant]
     Indication: ARTHRITIS
  4. ASPIRIN [Concomitant]
     Indication: CEREBROVASCULAR ACCIDENT PROPHYLAXIS
  5. GABAPENTIN [Concomitant]
     Indication: FIBROMYALGIA

REACTIONS (2)
  - DEPRESSION [None]
  - PATHOLOGICAL GAMBLING [None]
